FAERS Safety Report 8153597-2 (Version None)
Quarter: 2012Q1

REPORT INFORMATION
  Report Type: 
  Country: None (occurrence: None)
  Receive Date: 20120216
  Receipt Date: 20120216
  Transmission Date: 20120608
  Serious: Yes (Hospitalization, Other)
  Sender: FDA-Public Use
  Company Number: None

PATIENT
  Age: 50 Year
  Sex: Female

DRUGS (1)
  1. SPRYCEL [Suspect]
     Dosage: 50 MG QD PO
     Route: 048
     Dates: start: 20110207, end: 20120214

REACTIONS (1)
  - MIGRAINE [None]
